FAERS Safety Report 8988662 (Version 2)
Quarter: 2013Q3

REPORT INFORMATION
  Report Type: Spontaneous
  Country: US (occurrence: None)
  Receive Date: 20121218
  Receipt Date: 20130904
  Transmission Date: 20140515
  Serious: Yes (Hospitalization, Other)
  Sender: FDA-Public Use
  Company Number: 2012P1066641

PATIENT
  Age: 71 Year
  Sex: Male

DRUGS (1)
  1. INFUMORPH [Suspect]

REACTIONS (2)
  - Intervertebral disc operation [None]
  - Device damage [None]
